FAERS Safety Report 23046761 (Version 2)
Quarter: 2023Q4

REPORT INFORMATION
  Report Type: Report from Study
  Country: US (occurrence: US)
  Receive Date: 20231009
  Receipt Date: 20231016
  Transmission Date: 20240110
  Serious: Yes (Hospitalization)
  Sender: FDA-Public Use
  Company Number: US-ABBVIE-5440928

PATIENT
  Sex: Female

DRUGS (2)
  1. DUOPA [Suspect]
     Active Substance: CARBIDOPA\LEVODOPA
     Indication: Parkinson^s disease
     Route: 050
     Dates: start: 20230508
  2. DUOPA [Suspect]
     Active Substance: CARBIDOPA\LEVODOPA
     Dosage: MD: 9ML (RANGE 8.5-9.5ML) LOCKOUT 20 HOURS, CD: 1.4ML PER HOUR (RANGE 1-1.5ML), ED: 1ML (RANGE 1-...
     Route: 050
     Dates: start: 202305

REACTIONS (3)
  - Fluid intake reduced [Unknown]
  - Hypophagia [Recovered/Resolved]
  - Dehydration [Recovered/Resolved]

NARRATIVE: CASE EVENT DATE: 20230101
